FAERS Safety Report 6486524-4 (Version None)
Quarter: 2009Q4

REPORT INFORMATION
  Report Type: 
  Country: None (occurrence: None)
  Receive Date: 20091210
  Receipt Date: 20091201
  Transmission Date: 20100525
  Serious: Yes (Other)
  Sender: FDA-Public Use
  Company Number: US-JNJFOC-20090807153

PATIENT
  Sex: Female

DRUGS (3)
  1. REMICADE [Suspect]
     Route: 042
     Dates: start: 20090101, end: 20090819
  2. REMICADE [Suspect]
     Route: 042
     Dates: start: 20090101, end: 20090819
  3. REMICADE [Suspect]
     Indication: CROHN'S DISEASE
     Dosage: REPORTED AS 6 WEEKS AGO
     Route: 042
     Dates: start: 20090101, end: 20090819

REACTIONS (7)
  - ADVERSE EVENT [None]
  - FLUSHING [None]
  - HEART RATE INCREASED [None]
  - INFUSION RELATED REACTION [None]
  - PYREXIA [None]
  - RESPIRATORY ARREST [None]
  - THROAT TIGHTNESS [None]
